FAERS Safety Report 4289789-2 (Version None)
Quarter: 2004Q1

REPORT INFORMATION
  Report Type: 
  Country: None (occurrence: None)
  Receive Date: 20040210
  Receipt Date: 20040126
  Transmission Date: 20041129
  Serious: Yes (Other)
  Sender: FDA-Public Use
  Company Number: FR-GLAXOSMITHKLINE-B0321327A

PATIENT
  Age: 52 Year
  Sex: Female

DRUGS (2)
  1. MYLERAN [Suspect]
     Indication: THROMBOCYTOPENIA
     Dosage: 2UNIT PER DAY
     Route: 065
     Dates: start: 20030701, end: 20031101
  2. PLAVIX [Concomitant]
     Route: 065

REACTIONS (1)
  - HAEMOPTYSIS [None]
